FAERS Safety Report 8620132-1 (Version None)
Quarter: 2012Q3

REPORT INFORMATION
  Report Type: 
  Country: None (occurrence: None)
  Receive Date: 20120824
  Receipt Date: 20120822
  Transmission Date: 20120928
  Serious: Yes (Hospitalization)
  Sender: FDA-Public Use
  Company Number: DE-JNJFOC-20120808345

PATIENT
  Sex: Female
  Weight: 16.1 kg

DRUGS (3)
  1. FOLSAN [Concomitant]
     Indication: JUVENILE ARTHRITIS
     Route: 048
     Dates: start: 20110107
  2. GOLIMUMAB [Suspect]
     Route: 058
     Dates: start: 20120801
  3. GOLIMUMAB [Suspect]
     Indication: JUVENILE ARTHRITIS
     Route: 058
     Dates: start: 20110606

REACTIONS (1)
  - WOUND INFECTION [None]
